FAERS Safety Report 23165493 (Version 4)
Quarter: 2023Q4

REPORT INFORMATION
  Report Type: Report from Study
  Country: None (occurrence: CN)
  Receive Date: 20231109
  Receipt Date: 20231215
  Transmission Date: 20240109
  Serious: Yes (Life-Threatening)
  Sender: FDA-Public Use
  Company Number: CN-Jiangsu Hansoh Pharmaceutical Co., Ltd-2148036

PATIENT
  Age: 55 Year
  Sex: Male
  Weight: 46.8 kg

DRUGS (4)
  1. GEMCITABINE [Suspect]
     Active Substance: GEMCITABINE
     Indication: Undifferentiated nasopharyngeal carcinoma
     Route: 041
     Dates: start: 20230711, end: 20230711
  2. CISPLATIN [Suspect]
     Active Substance: CISPLATIN
     Route: 041
     Dates: start: 20230711, end: 20230711
  3. PIMURUTAMAB [Suspect]
     Active Substance: PIMURUTAMAB
     Dates: start: 20230711, end: 20230711
  4. SERPLULIMAB [Suspect]
     Active Substance: SERPLULIMAB
     Route: 041
     Dates: start: 20230711, end: 20230711

REACTIONS (2)
  - Platelet count decreased [Recovered/Resolved]
  - Off label use [Unknown]

NARRATIVE: CASE EVENT DATE: 20231024
